FAERS Safety Report 8061939-1 (Version None)
Quarter: 2012Q1

REPORT INFORMATION
  Report Type: 
  Country: None (occurrence: None)
  Receive Date: 20120117
  Receipt Date: 20120109
  Transmission Date: 20120608
  Serious: Yes (Hospitalization, Other)
  Sender: FDA-Public Use
  Company Number: 2010MA003024

PATIENT
  Age: 59 Year
  Sex: Male
  Weight: 104.3273 kg

DRUGS (31)
  1. HYDRALAZINE HCL [Concomitant]
  2. TOPROL-XL [Concomitant]
  3. SIMVASTATIN [Concomitant]
  4. TETRACYCLINE [Concomitant]
  5. METRONIDAZOLE [Concomitant]
  6. NEXIUM [Concomitant]
  7. DOMPERIDONE [Concomitant]
  8. PREDNISONE TAB [Concomitant]
  9. ORPHENADRINE CITRATE [Concomitant]
  10. VYTORIN [Concomitant]
  11. PROMETHAZINE [Concomitant]
  12. CODEINE PHOSPHATE AND ACETAMINOPHEN [Concomitant]
  13. AZOR [Concomitant]
  14. NEURONTIN [Concomitant]
  15. ANTI-HTN MEDICATIONS [Concomitant]
  16. METOCLOPRAMIDE [Suspect]
     Indication: GASTROOESOPHAGEAL REFLUX DISEASE
     Dosage: 10 MG;QID;PO
     Route: 048
     Dates: start: 19940101, end: 20090418
  17. METOCLOPRAMIDE [Suspect]
     Indication: IMPAIRED GASTRIC EMPTYING
     Dosage: 10 MG;QID;PO
     Route: 048
     Dates: start: 19940101, end: 20090418
  18. POTASSIUM CHLORIDE HYDROCHLOROTHIAZIDE [Concomitant]
  19. DIPHENOXYLATE HCL + ATROPINE SULFATE [Concomitant]
  20. CYCLOBENZAPRINE [Concomitant]
  21. CHERATUSSIN [Concomitant]
  22. LORTAB [Concomitant]
  23. LOTREL [Concomitant]
  24. CIPROFLOXACIN [Concomitant]
  25. PREVACID [Concomitant]
  26. VIAGRA [Concomitant]
  27. OXYCONTIN [Concomitant]
  28. SOMA [Concomitant]
  29. CARISOPRODOL [Concomitant]
  30. ZOCOR [Concomitant]
  31. HYDROCODONE BITARTRATE AND ACETAMINOPHEN [Concomitant]

REACTIONS (14)
  - ECONOMIC PROBLEM [None]
  - EXTRAPYRAMIDAL DISORDER [None]
  - TREMOR [None]
  - CHOLECYSTECTOMY [None]
  - ABDOMINAL DISCOMFORT [None]
  - HELICOBACTER GASTRITIS [None]
  - ABDOMINAL DISTENSION [None]
  - ERUCTATION [None]
  - GASTRITIS EROSIVE [None]
  - EMOTIONAL DISORDER [None]
  - IMPAIRED GASTRIC EMPTYING [None]
  - TARDIVE DYSKINESIA [None]
  - INJURY [None]
  - ANXIETY [None]
